FAERS Safety Report 18510870 (Version 1)
Quarter: 2020Q4

REPORT INFORMATION
  Report Type: Spontaneous
  Country: US (occurrence: US)
  Receive Date: 20201117
  Receipt Date: 20201117
  Transmission Date: 20210114
  Serious: No
  Sender: FDA-Public Use
  Company Number: US-ALLERGAN-2024488US

PATIENT
  Sex: Male

DRUGS (3)
  1. COMBIGAN [Suspect]
     Active Substance: BRIMONIDINE TARTRATE\TIMOLOL MALEATE
     Indication: GLAUCOMA
     Dosage: 2 - 3 GTTS OU, TID
     Route: 047
  2. ALPHAGAN P [Concomitant]
     Active Substance: BRIMONIDINE TARTRATE
     Indication: GLAUCOMA
     Dosage: 2-3 GTT OU, QD
     Route: 047
  3. LATANOPROST. [Concomitant]
     Active Substance: LATANOPROST
     Indication: GLAUCOMA
     Dosage: 2-3 GTT OU, QD
     Route: 047

REACTIONS (13)
  - Accidental overdose [Unknown]
  - Intentional product misuse [Unknown]
  - Erythema [Recovering/Resolving]
  - Vision blurred [Unknown]
  - Dry skin [Recovering/Resolving]
  - Lethargy [Unknown]
  - Eye irritation [Unknown]
  - Fatigue [Unknown]
  - Therapeutic product effect decreased [Unknown]
  - Dizziness [Unknown]
  - Heart rate decreased [Unknown]
  - Wrong technique in product usage process [Unknown]
  - Somnolence [Unknown]
